FAERS Safety Report 10097682 (Version 1)
Quarter: 2014Q2

REPORT INFORMATION
  Report Type: Spontaneous
  Country: US (occurrence: US)
  Receive Date: 20140423
  Receipt Date: 20140423
  Transmission Date: 20141212
  Serious: No
  Sender: FDA-Public Use
  Company Number: US-BIOGENIDEC-2014BI034491

PATIENT
  Age: 55 Year
  Sex: Female

DRUGS (8)
  1. TECFIDERA [Suspect]
     Indication: MULTIPLE SCLEROSIS
     Route: 048
     Dates: start: 201306
  2. BACLOFEN [Concomitant]
  3. MAXALT [Concomitant]
  4. VITAMIN D [Concomitant]
  5. MAGNESIUM [Concomitant]
  6. CALCIUM [Concomitant]
  7. LUNESTA [Concomitant]
  8. ROZEREM [Concomitant]

REACTIONS (3)
  - Gait disturbance [Unknown]
  - Balance disorder [Unknown]
  - Restless legs syndrome [Unknown]
